FAERS Safety Report 23438442 (Version 1)
Quarter: 2024Q1

REPORT INFORMATION
  Report Type: Report from Study
  Country: US (occurrence: US)
  Receive Date: 20240124
  Receipt Date: 20240124
  Transmission Date: 20240410
  Serious: Yes (Death)
  Sender: FDA-Public Use
  Company Number: US-MIRATI-MT2024PM05801

PATIENT
  Sex: Female
  Weight: 46.259 kg

DRUGS (15)
  1. KRAZATI [Suspect]
     Active Substance: ADAGRASIB
     Indication: Lung neoplasm malignant
     Dosage: 600 MG, BID
     Route: 048
     Dates: start: 20230206
  2. KRAZATI [Suspect]
     Active Substance: ADAGRASIB
     Dosage: 400 MG, BID
     Route: 048
     Dates: start: 20230317
  3. KRAZATI [Suspect]
     Active Substance: ADAGRASIB
     Dosage: 200 MG, BID
     Route: 048
     Dates: start: 202306, end: 20230711
  4. ACETAMINOPHEN [Concomitant]
     Active Substance: ACETAMINOPHEN
  5. CETIRIZINE [Concomitant]
     Active Substance: CETIRIZINE HYDROCHLORIDE
  6. DEXAMETHASONE [Concomitant]
     Active Substance: DEXAMETHASONE
  7. FAMOTIDINE [Concomitant]
     Active Substance: FAMOTIDINE
  8. FENTANYL [Concomitant]
     Active Substance: FENTANYL\FENTANYL CITRATE
  9. IBUPROFEN [Concomitant]
     Active Substance: IBUPROFEN
  10. VITAMINS [Concomitant]
     Active Substance: VITAMINS
  11. PERCOCET [Concomitant]
     Active Substance: ACETAMINOPHEN\OXYCODONE HYDROCHLORIDE
  12. PROCHLORPERAZINE HCL [Concomitant]
  13. SILVADENE [Concomitant]
     Active Substance: SILVER SULFADIAZINE
  14. B COMPLEX SUPER POTENCY [Concomitant]
  15. .ALPHA.-TOCOPHEROL\ASCORBIC ACID [Concomitant]
     Active Substance: .ALPHA.-TOCOPHEROL\ASCORBIC ACID

REACTIONS (1)
  - Death [Fatal]
